FAERS Safety Report 12689120 (Version 1)
Quarter: 2016Q3

REPORT INFORMATION
  Report Type: Spontaneous
  Country: US (occurrence: US)
  Receive Date: 20160826
  Receipt Date: 20160826
  Transmission Date: 20161109
  Serious: No
  Sender: FDA-Public Use
  Company Number: US-BAYER-2016-158689

PATIENT
  Age: 59 Year
  Sex: Female
  Weight: 61.22 kg

DRUGS (8)
  1. RILUZOLE. [Concomitant]
     Active Substance: RILUZOLE
     Dosage: UNK
  2. SPIRIVA [Concomitant]
     Active Substance: TIOTROPIUM BROMIDE MONOHYDRATE
  3. CHILDREN CLARITIN ALLERGY [Suspect]
     Active Substance: LORATADINE
     Dosage: 1 DF, QD
     Route: 048
     Dates: end: 201608
  4. LEVOTHYROXINE. [Concomitant]
     Active Substance: LEVOTHYROXINE
     Dosage: UNK
  5. ALBUTEROL. [Concomitant]
     Active Substance: ALBUTEROL
  6. CLARITIN-D 24 HOUR [Suspect]
     Active Substance: LORATADINE\PSEUDOEPHEDRINE SULFATE
     Dosage: 1 DF, QD
     Route: 048
     Dates: end: 201608
  7. LEXAPRO [Concomitant]
     Active Substance: ESCITALOPRAM OXALATE
     Dosage: UNK
  8. MOBIC [Concomitant]
     Active Substance: MELOXICAM

REACTIONS (5)
  - Therapeutic response unexpected [None]
  - Wrong technique in product usage process [None]
  - Drug ineffective [None]
  - Drug prescribing error [None]
  - Product use issue [None]
